FAERS Safety Report 21067483 (Version 6)
Quarter: 2023Q1

REPORT INFORMATION
  Report Type: Spontaneous
  Country: US (occurrence: US)
  Receive Date: 20220712
  Receipt Date: 20230222
  Transmission Date: 20230417
  Serious: Yes (Hospitalization, Other)
  Sender: FDA-Public Use
  Company Number: US-BRISTOL-MYERS SQUIBB COMPANY-2022-058526

PATIENT
  Age: 80 Year
  Sex: Female

DRUGS (3)
  1. REVLIMID [Suspect]
     Active Substance: LENALIDOMIDE
     Indication: Plasma cell myeloma
     Dosage: 25MG DAILY 21 DAYS AND 7 DAYS OFF
     Route: 048
     Dates: start: 20220614
  2. REVLIMID [Suspect]
     Active Substance: LENALIDOMIDE
     Dosage: TAKE 1 CAPSULE BY MOUTH DAILY FOR 21 DAYS ON, 7 DAYS OFF
     Route: 048
  3. REVLIMID [Suspect]
     Active Substance: LENALIDOMIDE
     Dosage: TAKE 1 CAPSULE BY MOUTH DAILY FOR 21 DAYS ON, 7 DAYS OFF
     Route: 048
     Dates: start: 20220614

REACTIONS (15)
  - Swelling [Unknown]
  - COVID-19 [Recovered/Resolved]
  - Gait disturbance [Unknown]
  - Extra dose administered [Unknown]
  - Tooth disorder [Unknown]
  - Thrombosis [Recovered/Resolved]
  - Illness [Recovered/Resolved]
  - Fatigue [Unknown]
  - Asthenia [Unknown]
  - Back pain [Unknown]
  - Arthralgia [Unknown]
  - Decreased appetite [Unknown]
  - Dyspnoea exertional [Unknown]
  - Constipation [Unknown]
  - Neuropathy peripheral [Unknown]
